FAERS Safety Report 9000063 (Version 2)
Quarter: 2013Q1

REPORT INFORMATION
  Report Type: Spontaneous
  Country: IT (occurrence: IT)
  Receive Date: 20130102
  Receipt Date: 20130301
  Transmission Date: 20140127
  Serious: Yes (Other)
  Sender: FDA-Public Use
  Company Number: IT-BRISTOL-MYERS SQUIBB COMPANY-17250192

PATIENT
  Age: 64 Year
  Sex: Female

DRUGS (5)
  1. ERBITUX [Suspect]
     Indication: COLON CANCER
     Dates: start: 20121119, end: 20121119
  2. IRINOTECAN [Concomitant]
     Route: 042
     Dates: start: 20121119, end: 20121119
  3. FOLINIC ACID [Concomitant]
  4. 5-FLUOROURACIL [Concomitant]
     Route: 042
     Dates: start: 20121119, end: 20121119
  5. CALCIUM FOLINATE [Concomitant]
     Route: 042
     Dates: start: 20121119, end: 20121119

REACTIONS (2)
  - Thrombocytopenia [Not Recovered/Not Resolved]
  - Neutropenia [Not Recovered/Not Resolved]
